FAERS Safety Report 8515283-6 (Version None)
Quarter: 2012Q3

REPORT INFORMATION
  Report Type: 
  Country: None (occurrence: None)
  Receive Date: 20120717
  Receipt Date: 20120710
  Transmission Date: 20120928
  Serious: Yes (Other)
  Sender: FDA-Public Use
  Company Number: CA-ROCHE-730810

PATIENT
  Sex: Female
  Weight: 61.29 kg

DRUGS (5)
  1. NAPROXEN [Concomitant]
  2. ASCORBIC ACID [Concomitant]
  3. RITUXAN [Suspect]
     Indication: RHEUMATOID ARTHRITIS
     Dosage: FORM INFUSION
     Route: 042
  4. HYDROMORPHONE HCL [Concomitant]
  5. LOVAZA [Concomitant]

REACTIONS (9)
  - HIP ARTHROPLASTY [None]
  - JOINT SWELLING [None]
  - DYSPHONIA [None]
  - COUGH [None]
  - RASH [None]
  - OROPHARYNGEAL PAIN [None]
  - INCREASED UPPER AIRWAY SECRETION [None]
  - HEADACHE [None]
  - CHEST DISCOMFORT [None]
